FAERS Safety Report 4715570-3 (Version None)
Quarter: 2005Q3

REPORT INFORMATION
  Report Type: 
  Country: None (occurrence: None)
  Receive Date: 20050715
  Receipt Date: 20050715
  Transmission Date: 20060218
  Serious: Yes (Other)
  Sender: FDA-Public Use
  Company Number: None

PATIENT
  Age: 34 Year
  Sex: Female

DRUGS (6)
  1. PROMETHAZINE [Suspect]
     Indication: NAUSEA
     Dosage: 12.5 MG IV
     Route: 042
     Dates: start: 20030705
  2. HYDROMORPHONE HCL [Suspect]
     Indication: PAIN
     Dosage: SEE IMAGE
     Dates: start: 20030705
  3. CEFTAZIDIME [Concomitant]
  4. GENTAMICIN [Concomitant]
  5. OMEPRAZOLE [Concomitant]
  6. SEVELAMER [Concomitant]

REACTIONS (4)
  - DEPRESSED LEVEL OF CONSCIOUSNESS [None]
  - NAUSEA [None]
  - PAIN [None]
  - RESPIRATORY RATE DECREASED [None]
